FAERS Safety Report 4900006-X (Version None)
Quarter: 2006Q1

REPORT INFORMATION
  Report Type: 
  Country: None (occurrence: None)
  Receive Date: 20060201
  Receipt Date: 20060121
  Transmission Date: 20060701
  Serious: Yes (Disabling, Other)
  Sender: FDA-Public Use
  Company Number: 2006000144

PATIENT
  Age: 41 Year
  Sex: Male
  Weight: 102.0593 kg

DRUGS (2)
  1. NORVASC [Suspect]
     Indication: HYPERTENSION
     Dosage: 10 MG (10 MG, DAILY)
     Dates: start: 20020101
  2. DYAZIDE [Concomitant]

REACTIONS (5)
  - ACCIDENT AT WORK [None]
  - BACK INJURY [None]
  - EJACULATION DISORDER [None]
  - POST PROCEDURAL COMPLICATION [None]
  - SCAR [None]
